FAERS Safety Report 7174276-4 (Version None)
Quarter: 2010Q4

REPORT INFORMATION
  Report Type: 
  Country: None (occurrence: None)
  Receive Date: 20101202
  Receipt Date: 20101124
  Transmission Date: 20110411
  Serious: Yes (Hospitalization)
  Sender: FDA-Public Use
  Company Number: 2010SP061810

PATIENT
  Age: 67 Year
  Sex: Male

DRUGS (2)
  1. RIBAVIRIN [Suspect]
     Indication: HEPATITIS C
     Dosage: 600 MG
     Dates: start: 20081201, end: 20100301
  2. PEG-INTERFERON ALFA 2A (PEGINTERFERON ALFA-2A) [Suspect]
     Indication: HEPATITIS C
     Dosage: 180 MCG
     Dates: start: 20081201, end: 20100301

REACTIONS (4)
  - ASCITES [None]
  - ASPARTATE AMINOTRANSFERASE INCREASED [None]
  - NEPHROTIC SYNDROME [None]
  - PLEURAL EFFUSION [None]
